FAERS Safety Report 20321315 (Version 1)
Quarter: 2022Q1

REPORT INFORMATION
  Report Type: Spontaneous
  Country: US (occurrence: None)
  Receive Date: 20220110
  Receipt Date: 20220110
  Transmission Date: 20220423
  Serious: Yes (Death)
  Sender: FDA-Public Use
  Company Number: None

PATIENT
  Age: 71 Year
  Sex: Male
  Weight: 56.2 kg

DRUGS (12)
  1. DUVELISIB [Suspect]
     Active Substance: DUVELISIB
     Indication: Metastatic squamous cell carcinoma
     Dosage: FREQUENCY : TWICE A DAY;?
     Route: 048
     Dates: start: 20211106, end: 20211217
  2. DOCETAXEL [Suspect]
     Active Substance: DOCETAXEL
     Indication: Metastatic squamous cell carcinoma
     Dates: start: 20211112, end: 20211201
  3. ASPIRIN [Concomitant]
     Active Substance: ASPIRIN
  4. ATORVASTATIN CALCIUM [Concomitant]
     Active Substance: ATORVASTATIN CALCIUM
  5. DEXAMETHASONE [Concomitant]
     Active Substance: DEXAMETHASONE
  6. DUVELISIB [Concomitant]
     Active Substance: DUVELISIB
  7. FLUORIDE (SODIUM) [Concomitant]
  8. LEVOTHYROXINE SODIUM [Concomitant]
     Active Substance: LEVOTHYROXINE SODIUM
  9. METOPROLOL SUCCINATE [Concomitant]
     Active Substance: METOPROLOL SUCCINATE
  10. NYSTATIN [Concomitant]
     Active Substance: NYSTATIN
  11. OMEPRAZOLE [Concomitant]
     Active Substance: OMEPRAZOLE
  12. SULFAMETHOXAZOLE [Concomitant]
     Active Substance: SULFAMETHOXAZOLE

REACTIONS (8)
  - Dysphagia [None]
  - Weight decreased [None]
  - Mucosal inflammation [None]
  - Pneumonia aspiration [None]
  - Viraemia [None]
  - Gastrointestinal haemorrhage [None]
  - Enterocolitis [None]
  - Cardiac arrest [None]

NARRATIVE: CASE EVENT DATE: 20220108
